FAERS Safety Report 23279749 (Version 1)
Quarter: 2023Q4

REPORT INFORMATION
  Report Type: Other
  Country: US (occurrence: US)
  Receive Date: 20231210
  Receipt Date: 20231210
  Transmission Date: 20240109
  Serious: Yes (Hospitalization, Other)
  Sender: FDA-Public Use
  Company Number: US-MLMSERVICE-20231116-4665039-1

PATIENT
  Age: 42 Year
  Sex: Female

DRUGS (3)
  1. MAGNESIUM OXIDE [Suspect]
     Active Substance: MAGNESIUM OXIDE
  2. OMEPRAZOLE [Suspect]
     Active Substance: OMEPRAZOLE
  3. LEVOTHYROXINE [Suspect]
     Active Substance: LEVOTHYROXINE
     Indication: Hypothyroidism
     Dosage: EACH MORNING

REACTIONS (2)
  - Hypothyroidism [Unknown]
  - Malabsorption [Unknown]
